FAERS Safety Report 9244579 (Version 4)
Quarter: 2013Q3

REPORT INFORMATION
  Report Type: Spontaneous
  Country: IT (occurrence: IT)
  Receive Date: 20130422
  Receipt Date: 20130920
  Transmission Date: 20140515
  Serious: Yes (Hospitalization)
  Sender: FDA-Public Use
  Company Number: IT-PFIZER INC-2013123804

PATIENT
  Age: 65 Year
  Sex: Male

DRUGS (2)
  1. ATENOLOL [Suspect]
     Dosage: 2 DF, SINGLE
     Route: 048
     Dates: start: 20121219, end: 20121219
  2. NORVASC [Suspect]
     Dosage: UNK

REACTIONS (4)
  - Drug administration error [Recovered/Resolved]
  - Presyncope [Unknown]
  - Blood pressure decreased [Unknown]
  - Cold sweat [Unknown]
